FAERS Safety Report 18959135 (Version 1)
Quarter: 2021Q1

REPORT INFORMATION
  Report Type: Other
  Country: CA (occurrence: CA)
  Receive Date: 20210302
  Receipt Date: 20210302
  Transmission Date: 20210420
  Serious: Yes (Other)
  Sender: FDA-Public Use
  Company Number: CA-APOTEX-2021AP004143

PATIENT
  Sex: Female

DRUGS (2)
  1. ZOLEDRONIC ACID [Suspect]
     Active Substance: ZOLEDRONIC ACID
     Indication: PRODUCT USED FOR UNKNOWN INDICATION
     Dosage: UNK
     Route: 065
  2. ACLASTA [Suspect]
     Active Substance: ZOLEDRONIC ACID
     Indication: OSTEOPOROSIS
     Dosage: 5 MILLIGRAM
     Route: 042

REACTIONS (13)
  - Feeling cold [Unknown]
  - Malaise [Unknown]
  - Vomiting [Unknown]
  - Stress [Unknown]
  - Anxiety [Unknown]
  - Tooth disorder [Unknown]
  - Dysphonia [Unknown]
  - General physical health deterioration [Unknown]
  - Somnolence [Unknown]
  - Emotional disorder [Unknown]
  - Speech disorder [Unknown]
  - Pyrexia [Unknown]
  - Drug ineffective [Unknown]
